FAERS Safety Report 26126790 (Version 1)
Quarter: 2025Q4

REPORT INFORMATION
  Report Type: Spontaneous
  Country: US (occurrence: None)
  Receive Date: 20251205
  Receipt Date: 20251205
  Transmission Date: 20260117
  Serious: Yes (Hospitalization)
  Sender: FDA-CTU
  Company Number: None

PATIENT
  Age: 36 Year
  Sex: Male

DRUGS (12)
  1. MYFORTIC [Suspect]
     Active Substance: MYCOPHENOLATE SODIUM
     Indication: Liver transplant
     Dosage: FREQUENCY : TWICE A DAY;
     Route: 048
     Dates: start: 20251028
  2. ENVARSUS XR [Suspect]
     Active Substance: TACROLIMUS
     Indication: Liver transplant
     Dosage: FREQUENCY : DAILY;
     Route: 048
     Dates: start: 20251028
  3. ASPIRIN [Concomitant]
     Active Substance: ASPIRIN
     Dates: start: 20251028
  4. mag-oxide 400mg [Concomitant]
     Dates: start: 20251028
  5. METHOCARBAMOL [Concomitant]
     Active Substance: METHOCARBAMOL
     Dates: start: 20251028
  6. PANTOPRAZOLE SODIUM [Concomitant]
     Active Substance: PANTOPRAZOLE SODIUM
     Dates: start: 20251028
  7. PREDNISONE [Concomitant]
     Active Substance: PREDNISONE
     Dates: start: 20251028
  8. PREGABALIN [Concomitant]
     Active Substance: PREGABALIN
     Dates: start: 20251029
  9. SULFAMETHOXAZOLE\TRIMETHOPRIM [Concomitant]
     Active Substance: SULFAMETHOXAZOLE\TRIMETHOPRIM
     Dates: start: 20251028
  10. TRAZODONE [Concomitant]
     Active Substance: TRAZODONE HYDROCHLORIDE
     Dates: start: 20251028
  11. VALGANCICLOVIR [Concomitant]
     Active Substance: VALGANCICLOVIR
     Dates: start: 20251028
  12. VITAMIN D [Concomitant]
     Active Substance: VITAMIN D NOS
     Dates: start: 20251028

REACTIONS (3)
  - Asthenia [None]
  - Fatigue [None]
  - Melaena [None]

NARRATIVE: CASE EVENT DATE: 20251124
